FAERS Safety Report 8191504 (Version 3)
Quarter: 2014Q4

REPORT INFORMATION
  Report Type: Spontaneous
  Country: US (occurrence: None)
  Receive Date: 20111012
  Receipt Date: 20141020
  Transmission Date: 20150529
  Serious: Yes (Hospitalization)
  Sender: FDA-Public Use
  Company Number: JPI-P-017412

PATIENT
  Age: 45 Year
  Sex: Female

DRUGS (1)
  1. XYREM [Suspect]
     Active Substance: SODIUM OXYBATE
     Indication: NARCOLEPSY
     Dosage: UNK UNK, BID, ORAL
     Route: 048
     Dates: start: 201105

REACTIONS (5)
  - Hypertension [None]
  - Middle insomnia [None]
  - Condition aggravated [None]
  - Hysterectomy [None]
  - Endometriosis [None]

NARRATIVE: CASE EVENT DATE: 20110706
